FAERS Safety Report 12483392 (Version 1)
Quarter: 2016Q2

REPORT INFORMATION
  Report Type: Spontaneous
  Country: US (occurrence: US)
  Receive Date: 20160621
  Receipt Date: 20160621
  Transmission Date: 20160815
  Serious: No
  Sender: FDA-Public Use
  Company Number: US-ASTRAZENECA-2016SE54850

PATIENT
  Sex: Male
  Weight: 20 kg

DRUGS (4)
  1. CRESTOR [Suspect]
     Active Substance: ROSUVASTATIN CALCIUM
     Indication: HIGH DENSITY LIPOPROTEIN INCREASED
     Route: 048
     Dates: start: 2016, end: 2016
  2. LISINOPRIL. [Suspect]
     Active Substance: LISINOPRIL
     Route: 048
  3. ALLOPURINOL. [Concomitant]
     Active Substance: ALLOPURINOL
     Dosage: 300, DAILY
  4. CRESTOR [Suspect]
     Active Substance: ROSUVASTATIN CALCIUM
     Indication: LIPIDS ABNORMAL
     Route: 048
     Dates: start: 2016, end: 2016

REACTIONS (2)
  - Neck pain [Unknown]
  - Off label use [Unknown]

NARRATIVE: CASE EVENT DATE: 2016
